FAERS Safety Report 10018073 (Version 2)
Quarter: 2014Q1

REPORT INFORMATION
  Report Type: Spontaneous
  Country: US (occurrence: US)
  Receive Date: 20140318
  Receipt Date: 20140318
  Transmission Date: 20141002
  Serious: No
  Sender: FDA-Public Use
  Company Number: US-BRISTOL-MYERS SQUIBB COMPANY-18915769

PATIENT
  Age: 54 Year
  Sex: Male
  Weight: 163.26 kg

DRUGS (2)
  1. ERBITUX [Suspect]
     Indication: COLON CANCER
     Dosage: LOADING DOSE:1052MG?INTER:17MAY2013?RESTARTED:07JUN2013:670MG PER WEEK
     Route: 042
     Dates: start: 20130510
  2. CAMPTOSAR [Concomitant]

REACTIONS (1)
  - Rash pustular [Recovering/Resolving]
